FAERS Safety Report 7348511-3 (Version None)
Quarter: 2011Q1

REPORT INFORMATION
  Report Type: 
  Country: None (occurrence: None)
  Receive Date: 20110314
  Receipt Date: 20110302
  Transmission Date: 20110831
  Serious: Yes (Hospitalization)
  Sender: FDA-Public Use
  Company Number: US-ASTRAZENECA-2011SE11423

PATIENT
  Age: 55 Year
  Sex: Female
  Weight: 81.6 kg

DRUGS (6)
  1. SEROQUEL [Suspect]
     Indication: BIPOLAR DISORDER
     Route: 048
     Dates: start: 20090101
  2. CLONIZAPAM [Concomitant]
  3. LYRICA [Concomitant]
     Indication: PAIN
  4. SEROQUEL [Suspect]
     Indication: PANIC DISORDER
     Route: 048
     Dates: start: 20090101
  5. SEROQUEL [Suspect]
     Indication: ANXIETY
     Route: 048
     Dates: start: 20090101
  6. SEROQUEL [Suspect]
     Indication: AGORAPHOBIA
     Route: 048
     Dates: start: 20090101

REACTIONS (12)
  - GASTRIC BYPASS [None]
  - FIBROMYALGIA [None]
  - ANXIETY [None]
  - DEPRESSION [None]
  - CHEST DISCOMFORT [None]
  - NO ADVERSE EVENT [None]
  - WRONG TECHNIQUE IN DRUG USAGE PROCESS [None]
  - BIPOLAR DISORDER [None]
  - THERAPEUTIC RESPONSE UNEXPECTED [None]
  - PANIC ATTACK [None]
  - NERVOUSNESS [None]
  - INTERVERTEBRAL DISC PROTRUSION [None]
